FAERS Safety Report 9801136 (Version 1)
Quarter: 2014Q1

REPORT INFORMATION
  Report Type: Spontaneous
  Country: US (occurrence: US)
  Receive Date: 20140107
  Receipt Date: 20140107
  Transmission Date: 20141002
  Serious: No
  Sender: FDA-Public Use
  Company Number: US-BAYER-2014-002293

PATIENT
  Age: 47 Year
  Sex: Female
  Weight: 80.73 kg

DRUGS (1)
  1. ALEVE CAPLET [Suspect]
     Indication: HEADACHE
     Dosage: 1 OR 2 DF, ONCE
     Route: 048
     Dates: start: 201312, end: 201312

REACTIONS (1)
  - Rash macular [Recovered/Resolved]
